FAERS Safety Report 22277970 (Version 1)
Quarter: 2023Q2

REPORT INFORMATION
  Report Type: Spontaneous
  Country: CN (occurrence: CN)
  Receive Date: 20230503
  Receipt Date: 20230503
  Transmission Date: 20230721
  Serious: Yes (Other)
  Sender: FDA-Public Use
  Company Number: CN-ORGANON-O2304CHN002980

PATIENT
  Sex: Male

DRUGS (1)
  1. REMERON [Suspect]
     Active Substance: MIRTAZAPINE
     Indication: Depression
     Dosage: UNK
     Route: 048

REACTIONS (5)
  - Brain hypoxia [Unknown]
  - Suicidal ideation [Unknown]
  - Restlessness [Unknown]
  - Depression [Not Recovered/Not Resolved]
  - Product availability issue [Unknown]
